FAERS Safety Report 12001593 (Version 1)
Quarter: 2016Q1

REPORT INFORMATION
  Report Type: Spontaneous
  Country: US (occurrence: US)
  Receive Date: 20160204
  Receipt Date: 20160204
  Transmission Date: 20160526
  Serious: No
  Sender: FDA-Public Use
  Company Number: US-PERRIGO-15US000653

PATIENT
  Age: 30 Year
  Sex: Female
  Weight: 78.46 kg

DRUGS (1)
  1. IBUPROFEN. [Suspect]
     Active Substance: IBUPROFEN
     Indication: PAIN IN JAW
     Dosage: 200 MG, TWICE IN 2 HOURS
     Route: 048
     Dates: start: 20150120, end: 20150120

REACTIONS (2)
  - No adverse event [Recovered/Resolved]
  - Exposure to unspecified agent [Recovered/Resolved]

NARRATIVE: CASE EVENT DATE: 20150120
